FAERS Safety Report 8592386-1 (Version None)
Quarter: 2012Q3

REPORT INFORMATION
  Report Type: 
  Country: None (occurrence: None)
  Receive Date: 20120814
  Receipt Date: 20120807
  Transmission Date: 20120928
  Serious: Yes (Hospitalization, Other)
  Sender: FDA-Public Use
  Company Number: JP-009507513-2012SP015366

PATIENT

DRUGS (22)
  1. REBETOL [Suspect]
     Indication: HEPATITIS C
     Dosage: 600 MG, QD
     Route: 048
     Dates: start: 20120126, end: 20120229
  2. REBETOL [Suspect]
     Dosage: 200 MG, QD
     Dates: start: 20120712
  3. TELAVIC [Suspect]
     Dosage: 1500 MG, QD
     Route: 048
     Dates: start: 20120308, end: 20120321
  4. CLOBETASOL PROPIONATE [Concomitant]
     Indication: PRODUCT USED FOR UNKNOWN INDICATION
     Dosage: DERMOVATE OINTMENT 0.05%
     Route: 061
     Dates: start: 20120128
  5. REBETOL [Suspect]
     Dosage: 200 MG, QD
     Route: 048
     Dates: start: 20120308
  6. REBETOL [Suspect]
     Dosage: 200 MG, QD
     Route: 048
     Dates: start: 20120315, end: 20120322
  7. REBETOL [Suspect]
     Dosage: 200 MG, QD
     Route: 048
     Dates: start: 20120331, end: 20120406
  8. PEGINTERFERON ALFA-2B [Suspect]
     Dosage: 80 ?G, QW
     Route: 058
     Dates: start: 20120331
  9. SEDEKOPAN [Concomitant]
     Indication: DEPRESSION
     Dosage: UPDATE (10MAY2012)
     Route: 048
     Dates: start: 20120414
  10. NESPO [Concomitant]
     Dosage: 120 MICROGRAM, PRN
     Dates: start: 20120614
  11. REBETOL [Suspect]
     Dosage: 400 MG, QD
     Route: 048
     Dates: start: 20120301, end: 20120307
  12. REBETOL [Suspect]
     Dosage: 400 MG, QD
     Route: 048
     Dates: start: 20120324, end: 20120330
  13. ALLOPURINOL [Concomitant]
     Indication: HYPERURICAEMIA
     Dosage: 100 MG, QD
     Route: 048
     Dates: start: 20120204, end: 20120430
  14. NESPO [Concomitant]
     Indication: PROPHYLAXIS
     Dosage: 60 MICROGRAM, UNK
     Route: 058
     Dates: start: 20120517, end: 20120531
  15. REBETOL [Suspect]
     Dosage: 600 MG, QD
     Route: 048
     Dates: start: 20120419, end: 20120516
  16. REBETOL [Suspect]
     Dosage: 400 MG, QD
     Dates: start: 20120517, end: 20120711
  17. TELAVIC [Suspect]
     Dosage: 1000 MG, QD
     Route: 048
     Dates: start: 20120324, end: 20120406
  18. PEGINTERFERON ALFA-2B [Suspect]
     Indication: HEPATITIS C
     Dosage: 1.5 ?G/KG, QW
     Route: 058
     Dates: start: 20120126
  19. TELAVIC [Suspect]
     Indication: HEPATITIS C
     Dosage: 2250 MG, QD
     Route: 048
     Dates: start: 20120126, end: 20120307
  20. PAXIL [Concomitant]
     Indication: DEPRESSION
     Dosage: UPDATE (10MAY2012)
     Route: 048
     Dates: start: 20120414
  21. PEGINTERFERON ALFA-2B [Suspect]
     Dosage: 1.5 MICROGRAM PER KILOGRAM, QW
     Route: 058
  22. CELESTAMINE TAB [Concomitant]
     Indication: PRODUCT USED FOR UNKNOWN INDICATION
     Dosage: UNK UNK, UNKNOWN
     Route: 065
     Dates: start: 20120127

REACTIONS (6)
  - ANAEMIA [None]
  - RENAL IMPAIRMENT [None]
  - MALAISE [None]
  - DECREASED APPETITE [None]
  - RASH [None]
  - HAEMOGLOBIN DECREASED [None]
